FAERS Safety Report 19744933 (Version 1)
Quarter: 2021Q3

REPORT INFORMATION
  Report Type: Spontaneous
  Country: CA (occurrence: CA)
  Receive Date: 20210825
  Receipt Date: 20210825
  Transmission Date: 20211014
  Serious: Yes (Other)
  Sender: FDA-Public Use
  Company Number: CA-PFIZER INC-202101068682

PATIENT
  Age: 71 Year
  Sex: Female
  Weight: 67 kg

DRUGS (11)
  1. STELARA [Suspect]
     Active Substance: USTEKINUMAB
     Route: 065
  2. IMURAN [Suspect]
     Active Substance: AZATHIOPRINE
     Route: 065
  3. TYLENOL [Suspect]
     Active Substance: ACETAMINOPHEN
     Route: 065
  4. FENTANYL. [Suspect]
     Active Substance: FENTANYL
     Route: 065
  5. PREDNISONE. [Suspect]
     Active Substance: PREDNISONE
     Route: 065
  6. MAGNESIUM SULFATE. [Concomitant]
     Active Substance: MAGNESIUM SULFATE
     Route: 065
  7. CODEINE [Suspect]
     Active Substance: CODEINE
     Route: 065
  8. HUMIRA [Suspect]
     Active Substance: ADALIMUMAB
     Route: 065
  9. METHOTREXATE SODIUM. [Suspect]
     Active Substance: METHOTREXATE SODIUM
     Dosage: 1 DF, WEEKLY
     Route: 058
  10. PENTASA [Suspect]
     Active Substance: MESALAMINE
     Route: 065
  11. TETRACYCLINE [Suspect]
     Active Substance: TETRACYCLINE
     Route: 065

REACTIONS (10)
  - Crohn^s disease [Unknown]
  - Somnolence [Unknown]
  - Vomiting [Unknown]
  - Condition aggravated [Unknown]
  - Illness [Unknown]
  - Drug intolerance [Unknown]
  - Drug ineffective [Unknown]
  - Pancreatitis [Unknown]
  - Feeling abnormal [Unknown]
  - Thirst [Unknown]
